FAERS Safety Report 4711069-9 (Version None)
Quarter: 2005Q3

REPORT INFORMATION
  Report Type: 
  Country: None (occurrence: None)
  Receive Date: 20050708
  Receipt Date: 20050628
  Transmission Date: 20060218
  Serious: Yes (Life-Threatening, Hospitalization, Disabling)
  Sender: FDA-Public Use
  Company Number: 2005093473

PATIENT
  Age: 67 Year
  Sex: Male

DRUGS (13)
  1. INSPRA [Suspect]
     Indication: CARDIAC FAILURE
     Dosage: 25 MG (25 MG, QD), ORAL
     Route: 048
     Dates: start: 20050128, end: 20050516
  2. INSPRA [Suspect]
     Dosage: 50 MG (50 MG, QD), ORAL
     Route: 048
     Dates: start: 20050517, end: 20050616
  3. LIPITOR [Suspect]
     Indication: DYSLIPIDAEMIA
     Dosage: 80 MG (80 MG, QD), ORAL
     Route: 048
     Dates: end: 20050617
  4. GEMFIBROZIL [Suspect]
     Indication: DYSLIPIDAEMIA
     Dosage: 600 MG (EVERY DAY), ORAL
     Route: 048
     Dates: end: 20050617
  5. EMCONCOR (BISOPROLOL) [Concomitant]
  6. COZAAR [Concomitant]
  7. FUROSEMIDE [Concomitant]
  8. AMARYL [Concomitant]
  9. ORMOX (ISOSORBIDE MONONITRATE) [Concomitant]
  10. MAREVAN ^ORION^ (WARFARIN SODIUM) [Concomitant]
  11. PROTAPHAN (INSULIN ISOPHANE, HUMAN BIOSYNTHETIC) [Concomitant]
  12. VITAMIN C (VITAMIN C) [Concomitant]
  13. VITAMIN E [Concomitant]

REACTIONS (5)
  - DIFFICULTY IN WALKING [None]
  - MUSCLE INJURY [None]
  - MUSCULAR WEAKNESS [None]
  - MYALGIA [None]
  - RENAL FAILURE [None]
